FAERS Safety Report 23047933 (Version 3)
Quarter: 2023Q4

REPORT INFORMATION
  Report Type: Report from Study
  Country: US (occurrence: US)
  Receive Date: 20231010
  Receipt Date: 20231228
  Transmission Date: 20240110
  Serious: Yes (Other)
  Sender: FDA-Public Use
  Company Number: US-Merck Healthcare KGaA-2023479331

PATIENT
  Age: 34 Year
  Sex: Male
  Weight: 88 kg

DRUGS (1)
  1. MAVENCLAD [Suspect]
     Active Substance: CLADRIBINE
     Indication: Multiple sclerosis
     Dosage: YEAR ONE CYCLE ONE
     Route: 048
     Dates: start: 20230911, end: 20230915

REACTIONS (9)
  - Abscess jaw [Not Recovered/Not Resolved]
  - Immunodeficiency [Unknown]
  - Subcutaneous abscess [Recovered/Resolved]
  - Abscess oral [Not Recovered/Not Resolved]
  - Tooth abscess [Not Recovered/Not Resolved]
  - Alopecia [Recovered/Resolved]
  - Muscular weakness [Unknown]
  - Discomfort [Unknown]
  - Grip strength decreased [Unknown]

NARRATIVE: CASE EVENT DATE: 20230914
